FAERS Safety Report 10825539 (Version 3)
Quarter: 2016Q1

REPORT INFORMATION
  Report Type: Report from Study
  Country: US (occurrence: US)
  Receive Date: 20150219
  Receipt Date: 20160201
  Transmission Date: 20160525
  Serious: No
  Sender: FDA-Public Use
  Company Number: US-ABBVIE-14K-163-1317859-00

PATIENT
  Age: 46 Year
  Sex: Female

DRUGS (3)
  1. HUMIRA [Suspect]
     Active Substance: ADALIMUMAB
     Indication: CROHN^S DISEASE
     Route: 065
     Dates: start: 20130102, end: 20141115
  2. IMURAN [Concomitant]
     Active Substance: AZATHIOPRINE
     Indication: PRODUCT USED FOR UNKNOWN INDICATION
  3. HUMIRA [Suspect]
     Active Substance: ADALIMUMAB
     Route: 065
     Dates: start: 20150103

REACTIONS (17)
  - Lacrimation increased [Unknown]
  - Eye pruritus [Unknown]
  - Head discomfort [Unknown]
  - Migraine [Unknown]
  - Headache [Unknown]
  - Frequent bowel movements [Unknown]
  - Wheezing [Unknown]
  - Sinusitis [Unknown]
  - Bronchitis [Unknown]
  - Migraine [Not Recovered/Not Resolved]
  - Nasal congestion [Unknown]
  - Impaired healing [Unknown]
  - Inappropriate schedule of drug administration [Recovered/Resolved]
  - Visual impairment [Unknown]
  - Nausea [Unknown]
  - Feeling abnormal [Unknown]
  - Pyoderma gangrenosum [Recovering/Resolving]

NARRATIVE: CASE EVENT DATE: 2014
